FAERS Safety Report 9891583 (Version 1)
Quarter: 2014Q1

REPORT INFORMATION
  Report Type: Spontaneous
  Country: US (occurrence: None)
  Receive Date: 20140212
  Receipt Date: 20140212
  Transmission Date: 20141002
  Serious: Yes (Disabling)
  Sender: FDA-Public Use
  Company Number: None

PATIENT
  Age: 14 Year
  Sex: Male
  Weight: 57.15 kg

DRUGS (1)
  1. L-CITRULLINE [Suspect]
     Indication: ORNITHINE TRANSCARBAMOYLASE DEFICIENCY
     Dosage: 9 CAPSULES
     Route: 048
     Dates: start: 20131218, end: 20140207

REACTIONS (4)
  - Product compounding quality issue [None]
  - Product odour abnormal [None]
  - Product solubility abnormal [None]
  - Drug level below therapeutic [None]
